FAERS Safety Report 5288587-0 (Version None)
Quarter: 2007Q2

REPORT INFORMATION
  Report Type: 
  Country: None (occurrence: None)
  Receive Date: 20070405
  Receipt Date: 20070402
  Transmission Date: 20071010
  Serious: Yes (Hospitalization)
  Sender: FDA-Public Use
  Company Number: DEWYE320203APR07

PATIENT
  Sex: Female
  Weight: 65 kg

DRUGS (4)
  1. VENLAFAXINE HCL [Suspect]
     Dosage: 120 CAPSULES (OVERDOSE AMOUNT 12750 MG)
     Route: 048
     Dates: start: 20070402, end: 20070402
  2. PROMETHAZINE [Suspect]
     Dosage: 10 TABLETS (OVERDOSE AMOUNT 250 MG)
     Route: 048
     Dates: start: 20070402, end: 20070402
  3. IBUPROFEN [Suspect]
     Dosage: 10 TABLETS (OVERDOSE AMOUNT 4000 MG)
     Route: 048
     Dates: start: 20070402, end: 20070402
  4. AMISULPRIDE [Suspect]
     Dosage: 50 TABLETS (OVERDOSE AMOUNT 20000 MG)
     Route: 048
     Dates: start: 20070402, end: 20070402

REACTIONS (5)
  - BOWEL SOUNDS ABNORMAL [None]
  - CONFUSIONAL STATE [None]
  - INTENTIONAL OVERDOSE [None]
  - SOMNOLENCE [None]
  - TACHYCARDIA [None]
